FAERS Safety Report 7916950-5 (Version None)
Quarter: 2011Q4

REPORT INFORMATION
  Report Type: 
  Country: None (occurrence: None)
  Receive Date: 20111114
  Receipt Date: 20100907
  Transmission Date: 20120403
  Serious: Yes (Hospitalization, Other)
  Sender: FDA-Public Use
  Company Number: 2010AP001792

PATIENT
  Age: 78 Year
  Sex: Female

DRUGS (5)
  1. NIFEDIPINE [Concomitant]
  2. ATENOLOL [Suspect]
     Indication: HYPERTENSION
  3. HYDROCHLOROTHIAZIDE [Suspect]
     Indication: HYPERTENSION
  4. NITROFURANTOIN [Concomitant]
  5. (NO PREF. NAME) [Concomitant]

REACTIONS (11)
  - TREMOR [None]
  - DIARRHOEA [None]
  - HYPONATRAEMIA [None]
  - DEPRESSED LEVEL OF CONSCIOUSNESS [None]
  - HAEMATURIA [None]
  - CONFUSIONAL STATE [None]
  - DELIRIUM [None]
  - CEREBROVASCULAR ACCIDENT [None]
  - HYPOAESTHESIA [None]
  - OEDEMA PERIPHERAL [None]
  - HYPOKALAEMIA [None]
